FAERS Safety Report 10534586 (Version 1)
Quarter: 2014Q4

REPORT INFORMATION
  Report Type: Spontaneous
  Country: PT (occurrence: PT)
  Receive Date: 20141022
  Receipt Date: 20141022
  Transmission Date: 20150529
  Serious: Yes (Other)
  Sender: FDA-Public Use
  Company Number: PHHY2014PT132408

PATIENT
  Age: 36 Year
  Sex: Female

DRUGS (2)
  1. IMPLANON [Concomitant]
     Active Substance: ETONOGESTREL
     Indication: CONTRACEPTION
     Dosage: 1 DF, QD
     Route: 058
     Dates: start: 201205
  2. GILENYA [Suspect]
     Active Substance: FINGOLIMOD HYDROCHLORIDE
     Indication: MULTIPLE SCLEROSIS
     Dosage: 0.5 MG, QD
     Route: 048
     Dates: start: 20130301

REACTIONS (15)
  - Bradycardia [Not Recovered/Not Resolved]
  - Hepatic enzyme increased [Unknown]
  - Chest discomfort [Unknown]
  - Diarrhoea [Recovered/Resolved]
  - Alopecia [Recovered/Resolved]
  - Headache [Not Recovered/Not Resolved]
  - Lymphopenia [Unknown]
  - Pruritus [Unknown]
  - Alanine aminotransferase increased [Unknown]
  - Cough [Recovered/Resolved]
  - Asthenia [Unknown]
  - Leukopenia [Not Recovered/Not Resolved]
  - Paraesthesia [Not Recovered/Not Resolved]
  - Depression [Recovered/Resolved]
  - Gamma-glutamyltransferase increased [Recovered/Resolved]

NARRATIVE: CASE EVENT DATE: 20130320
